FAERS Safety Report 5250383-8 (Version None)
Quarter: 2007Q1

REPORT INFORMATION
  Report Type: 
  Country: None (occurrence: None)
  Receive Date: 20070228
  Receipt Date: 20060406
  Transmission Date: 20070707
  Serious: No
  Sender: FDA-Public Use
  Company Number: US-GLAXOSMITHKLINE-A0600769A

PATIENT
  Age: 70 Year
  Sex: Female

DRUGS (11)
  1. LAMICTAL [Suspect]
     Indication: BIPOLAR DISORDER
     Dosage: 100MG PER DAY
     Route: 048
     Dates: start: 20050101
  2. LEXAPRO [Concomitant]
  3. AMBIEN [Concomitant]
  4. LORTAB [Concomitant]
  5. TIAZAC [Concomitant]
  6. MAXZIDE [Concomitant]
  7. FOSAMAX [Concomitant]
  8. ESTRATEST H.S. [Concomitant]
  9. HYDROXYZINE [Concomitant]
  10. TRIMETHOPRIM [Concomitant]
  11. XANAX [Concomitant]

REACTIONS (2)
  - DIPLOPIA [None]
  - VISION BLURRED [None]
